FAERS Safety Report 11125881 (Version 1)
Quarter: 2015Q2

REPORT INFORMATION
  Report Type: Spontaneous
  Country: US (occurrence: US)
  Receive Date: 20150520
  Receipt Date: 20150520
  Transmission Date: 20150821
  Serious: Yes (Other)
  Sender: FDA-Public Use
  Company Number: US-GLAXOSMITHKLINE-US2015GSK068343

PATIENT
  Age: 49 Year
  Sex: Female

DRUGS (1)
  1. ADVAIR DISKUS [Suspect]
     Active Substance: FLUTICASONE PROPIONATE\SALMETEROL XINAFOATE
     Indication: CHRONIC OBSTRUCTIVE PULMONARY DISEASE
     Dosage: UNK, U
     Route: 065
     Dates: start: 2012, end: 2015

REACTIONS (6)
  - Cough [Not Recovered/Not Resolved]
  - Injury [Unknown]
  - Heart valve replacement [Unknown]
  - Gait disturbance [Not Recovered/Not Resolved]
  - Treatment noncompliance [Unknown]
  - Cardiac operation [Unknown]

NARRATIVE: CASE EVENT DATE: 20120920
